FAERS Safety Report 23479817 (Version 1)
Quarter: 2024Q1

REPORT INFORMATION
  Report Type: Spontaneous
  Country: US (occurrence: US)
  Receive Date: 20240205
  Receipt Date: 20240205
  Transmission Date: 20240409
  Serious: No
  Sender: FDA-Public Use
  Company Number: NL-UCBSA-2023036318

PATIENT
  Age: 22 Year
  Sex: Female

DRUGS (7)
  1. KEPPRA [Suspect]
     Active Substance: LEVETIRACETAM
     Indication: Epilepsy
     Dosage: 500 MILLIGRAM, 2X/DAY (BID)
  2. BRIVIACT [Concomitant]
     Active Substance: BRIVARACETAM
     Indication: Epilepsy
     Dosage: 50 MILLIGRAM, 2X/DAY (BID)
     Route: 048
  3. BRIVIACT [Concomitant]
     Active Substance: BRIVARACETAM
     Dosage: 75 MILLIGRAM, 2X/DAY (BID)
     Route: 048
  4. UBRELVY [Concomitant]
     Active Substance: UBROGEPANT
     Indication: Migraine
     Dosage: 100 MILLIGRAM
     Dates: start: 20230506
  5. VENTOLIN HFA [Concomitant]
     Active Substance: ALBUTEROL SULFATE
     Indication: Epilepsy
     Dosage: 90 MICROGRAM 2 PUFFS, INHALATION, EVERY 6 HOURS PRN
  6. KLONOPIN [Concomitant]
     Active Substance: CLONAZEPAM
     Indication: Epilepsy
     Dosage: 0.5 MILLIGRAM, 2X/DAY (BID)
     Route: 048
  7. LEXAPRO [Concomitant]
     Active Substance: ESCITALOPRAM OXALATE
     Indication: Epilepsy
     Dosage: 25 MILLIGRAM, ONCE DAILY (QD)
     Route: 048

REACTIONS (6)
  - Headache [Unknown]
  - Dizziness [Unknown]
  - Paraesthesia [Unknown]
  - Anger [Unknown]
  - Aggression [Unknown]
  - Depression [Unknown]

NARRATIVE: CASE EVENT DATE: 20230101
